FAERS Safety Report 19460505 (Version 1)
Quarter: 2021Q2

REPORT INFORMATION
  Report Type: Other
  Country: CA (occurrence: CA)
  Receive Date: 20210625
  Receipt Date: 20210625
  Transmission Date: 20210717
  Serious: Yes (Hospitalization, Other)
  Sender: FDA-Public Use
  Company Number: CA-APOTEX-2021AP014829

PATIENT
  Age: 70 Year
  Sex: Male

DRUGS (1)
  1. GABAPENTIN. [Suspect]
     Active Substance: GABAPENTIN
     Indication: SCIATICA
     Dosage: UNK
     Route: 065

REACTIONS (2)
  - Depressed level of consciousness [Unknown]
  - Cholecystitis acute [Unknown]
